FAERS Safety Report 5039401-X (Version None)
Quarter: 2006Q2

REPORT INFORMATION
  Report Type: 
  Country: None (occurrence: None)
  Receive Date: 20060623
  Receipt Date: 20060606
  Transmission Date: 20061013
  Serious: Yes (Death, Other)
  Sender: FDA-Public Use
  Company Number: US200606001627

PATIENT
  Age: 74 Year
  Sex: Female

DRUGS (1)
  1. PROZAC [Suspect]
     Indication: SLEEP DISORDER
     Dosage: ORAL
     Route: 048

REACTIONS (2)
  - LOSS OF CONSCIOUSNESS [None]
  - SMALL CELL LUNG CANCER STAGE UNSPECIFIED [None]
